FAERS Safety Report 7930497-1 (Version None)
Quarter: 2011Q4

REPORT INFORMATION
  Report Type: 
  Country: None (occurrence: None)
  Receive Date: 20111121
  Receipt Date: 20091108
  Transmission Date: 20120403
  Serious: Yes (Other)
  Sender: FDA-Public Use
  Company Number: PHHY2010TW19719

PATIENT

DRUGS (1)
  1. GLEEVEC [Suspect]
     Indication: CHRONIC MYELOID LEUKAEMIA
     Dosage: 400 MG, BID

REACTIONS (7)
  - MOOD SWINGS [None]
  - CARDIAC DISORDER [None]
  - DIARRHOEA [None]
  - DRY MOUTH [None]
  - PERIPHERAL COLDNESS [None]
  - AGEUSIA [None]
  - WEIGHT DECREASED [None]
